FAERS Safety Report 10726778 (Version 6)
Quarter: 2015Q3

REPORT INFORMATION
  Report Type: Spontaneous
  Country: US (occurrence: US)
  Receive Date: 20150121
  Receipt Date: 20150827
  Transmission Date: 20151125
  Serious: Yes (Hospitalization, Other)
  Sender: FDA-Public Use
  Company Number: US-PFIZER INC-2015019004

PATIENT
  Age: 69 Year
  Sex: Female

DRUGS (3)
  1. XALKORI [Suspect]
     Active Substance: CRIZOTINIB
     Indication: NON-SMALL CELL LUNG CANCER
     Dosage: 250 MG, 2X/DAY
     Dates: start: 20141015, end: 20141120
  2. XALKORI [Suspect]
     Active Substance: CRIZOTINIB
     Dosage: 200 MG, 2X/DAY
     Dates: start: 20150205, end: 20150605
  3. COMPAZINE [Suspect]
     Active Substance: PROCHLORPERAZINE MALEATE
     Indication: VOMITING
     Dosage: UNK

REACTIONS (10)
  - Pneumonia [Unknown]
  - Vomiting [Unknown]
  - Weight decreased [Recovered/Resolved]
  - Asthenia [Recovered/Resolved]
  - Disease progression [Unknown]
  - Non-small cell lung cancer [Unknown]
  - Blood count abnormal [Recovered/Resolved]
  - Decreased appetite [Unknown]
  - Neutropenia [Recovered/Resolved]
  - Bronchitis [Recovered/Resolved]
